FAERS Safety Report 24411842 (Version 1)
Quarter: 2024Q4

REPORT INFORMATION
  Report Type: Spontaneous
  Country: FR (occurrence: FR)
  Receive Date: 20241008
  Receipt Date: 20241008
  Transmission Date: 20250114
  Serious: Yes (Hospitalization)
  Sender: BAXTER
  Company Number: None

PATIENT
  Age: 47 Year
  Sex: Female

DRUGS (1)
  1. SCOPOLAMINE [Suspect]
     Active Substance: SCOPOLAMINE
     Indication: Occupational exposure to product
     Dosage: 1MG FOR 72 HRS, DOSAGE TEXT: 1 MG/72 H, SCOPODERM TTS 1 MG/72 HOURS, TRANSDERMAL PATCH
     Route: 062
     Dates: start: 20240702, end: 20240702

REACTIONS (4)
  - Occupational exposure to product [Recovered/Resolved]
  - Device use error [Recovered/Resolved]
  - Mydriasis [Recovered/Resolved]
  - Headache [Recovered/Resolved]

NARRATIVE: CASE EVENT DATE: 20240702
